FAERS Safety Report 18259985 (Version 1)
Quarter: 2020Q3

REPORT INFORMATION
  Report Type: Report from Study
  Country: MX (occurrence: MX)
  Receive Date: 20200912
  Receipt Date: 20200912
  Transmission Date: 20201103
  Serious: Yes (Death)
  Sender: FDA-Public Use
  Company Number: NVSC2020MX249693

PATIENT
  Age: 83 Year
  Sex: Female
  Weight: 64 kg

DRUGS (1)
  1. REVOLADE [Suspect]
     Active Substance: ELTROMBOPAG
     Indication: PLATELET COUNT DECREASED
     Dosage: 25 MG, BID (START DATE WAS 2 YEARS AGO)
     Route: 048

REACTIONS (2)
  - Cardiac arrest [Fatal]
  - Inappropriate schedule of product administration [Unknown]

NARRATIVE: CASE EVENT DATE: 20190903
